FAERS Safety Report 17114232 (Version 3)
Quarter: 2020Q1

REPORT INFORMATION
  Report Type: Spontaneous
  Country: US (occurrence: US)
  Receive Date: 20191205
  Receipt Date: 20200128
  Transmission Date: 20200409
  Serious: No
  Sender: FDA-Public Use
  Company Number: US-AMGEN-USASP2019201331

PATIENT
  Age: 13 Year
  Sex: Female

DRUGS (2)
  1. ENBREL [Suspect]
     Active Substance: ETANERCEPT
     Indication: PSORIASIS
     Dosage: 37.5 MILLIGRAM, QWK
     Route: 065
     Dates: start: 20171214
  2. ENBREL [Suspect]
     Active Substance: ETANERCEPT
     Dosage: 37.5 MILLIGRAM, QWK
     Route: 065

REACTIONS (1)
  - Product physical consistency issue [Unknown]

NARRATIVE: CASE EVENT DATE: 20191128
